FAERS Safety Report 8148027-0 (Version None)
Quarter: 2012Q1

REPORT INFORMATION
  Report Type: 
  Country: None (occurrence: None)
  Receive Date: 20120218
  Receipt Date: 20120117
  Transmission Date: 20120608
  Serious: No
  Sender: FDA-Public Use
  Company Number: US-ALLERGAN-1105089US

PATIENT
  Age: 41 Year
  Sex: Female

DRUGS (1)
  1. BOTOX COSMETIC [Suspect]
     Indication: SKIN WRINKLING
     Dosage: 44 UNITS, SINGLE
     Route: 030
     Dates: start: 20110402, end: 20110402

REACTIONS (20)
  - CHEST PAIN [None]
  - EYELID PTOSIS [None]
  - EYE SWELLING [None]
  - INJECTION SITE REACTION [None]
  - ANXIETY [None]
  - SPEECH DISORDER [None]
  - PARAESTHESIA [None]
  - HEART RATE INCREASED [None]
  - ABNORMAL SENSATION IN EYE [None]
  - SWELLING FACE [None]
  - INJECTION SITE HAEMORRHAGE [None]
  - MUSCULAR WEAKNESS [None]
  - SKIN DISORDER [None]
  - ORAL PAIN [None]
  - SENSORY DISTURBANCE [None]
  - CONTUSION [None]
  - DYSPNOEA [None]
  - HEADACHE [None]
  - FACIAL PARESIS [None]
  - INJECTION SITE PAIN [None]
